FAERS Safety Report 5750924-8 (Version None)
Quarter: 2008Q2

REPORT INFORMATION
  Report Type: 
  Country: None (occurrence: None)
  Receive Date: 20080528
  Receipt Date: 20080522
  Transmission Date: 20081010
  Serious: Yes (Disabling)
  Sender: FDA-Public Use
  Company Number: GB-MERCK-0805GBR00100

PATIENT
  Age: 64 Year
  Sex: Female

DRUGS (4)
  1. TIMOPTIC [Suspect]
     Indication: CORNEAL GRAFT REJECTION
     Route: 047
  2. TIMOPTIC [Suspect]
     Indication: ENDOTHELIAL DYSFUNCTION
     Route: 047
  3. OFLOXACIN [Suspect]
     Route: 065
  4. PREDNISOLONE [Suspect]
     Route: 065

REACTIONS (1)
  - CORNEAL EPITHELIUM DEFECT [None]
